FAERS Safety Report 20858595 (Version 10)
Quarter: 2023Q2

REPORT INFORMATION
  Report Type: Report from Study
  Country: GB (occurrence: GB)
  Receive Date: 20220522
  Receipt Date: 20230627
  Transmission Date: 20230721
  Serious: Yes (Hospitalization, Other)
  Sender: FDA-Public Use
  Company Number: GB-NOVARTISPH-NVSC2022GB115277

PATIENT
  Age: 0 Year
  Sex: Male
  Weight: 6.2 kg

DRUGS (3)
  1. ZOLGENSMA [Suspect]
     Active Substance: ONASEMNOGENE ABEPARVOVEC-XIOI
     Indication: Spinal muscular atrophy
     Dosage: UNK, 6.6X10 (14) (4 VIALS OF 8.3ML) ONCE/SINGLE
     Route: 042
     Dates: start: 20220308
  2. PIPERACILLIN SODIUM\TAZOBACTAM SODIUM [Concomitant]
     Active Substance: PIPERACILLIN SODIUM\TAZOBACTAM SODIUM
     Indication: Product used for unknown indication
     Dosage: UNK
     Route: 065
  3. AMOXICILLIN\CLAVULANATE POTASSIUM [Concomitant]
     Active Substance: AMOXICILLIN\CLAVULANATE POTASSIUM
     Indication: Product used for unknown indication
     Dosage: UNK
     Route: 065

REACTIONS (13)
  - Bronchiolitis [Recovering/Resolving]
  - Dyspnoea [Recovering/Resolving]
  - Condition aggravated [Recovering/Resolving]
  - Enterovirus infection [Recovering/Resolving]
  - Rhinovirus infection [Recovering/Resolving]
  - Progressive bulbar palsy [Not Recovered/Not Resolved]
  - Aspiration [Unknown]
  - Pneumothorax [Unknown]
  - Feeding disorder [Unknown]
  - Lung consolidation [Unknown]
  - Dysphagia [Unknown]
  - Respiratory tract infection [Unknown]
  - Escherichia urinary tract infection [Unknown]

NARRATIVE: CASE EVENT DATE: 20220512
